FAERS Safety Report 8571680-4 (Version None)
Quarter: 2012Q3

REPORT INFORMATION
  Report Type: 
  Country: None (occurrence: None)
  Receive Date: 20120806
  Receipt Date: 20120803
  Transmission Date: 20120928
  Serious: Yes (Life-Threatening, Hospitalization)
  Sender: FDA-Public Use
  Company Number: JP-BRACCO-005681

PATIENT
  Sex: Male
  Weight: 78 kg

DRUGS (16)
  1. ASPIRIN [Concomitant]
     Indication: ANGINA PECTORIS
  2. MEXITIL [Concomitant]
  3. ISOSORBIDE DINITRATE [Concomitant]
  4. SIMVASTATIN [Concomitant]
  5. IOPAMIDOL-370 [Suspect]
     Indication: ANGINA PECTORIS
     Route: 042
     Dates: start: 20120214, end: 20120214
  6. METFORMIN HCL [Concomitant]
     Indication: DIABETES MELLITUS
  7. NORVASC [Concomitant]
     Indication: ANGINA PECTORIS
  8. GLUCOBAY [Concomitant]
  9. LOSARTAN POTASSIUM AND HYDROCHLOROTHIAZIDE [Concomitant]
  10. TAMSULOSIN HCL [Concomitant]
  11. SIGMART [Concomitant]
  12. DUTASTERIDE [Concomitant]
  13. HUMULIN R [Concomitant]
  14. IOPAMIDOL-370 [Suspect]
     Indication: COMPUTERISED TOMOGRAM CORONARY ARTERY
     Route: 042
     Dates: start: 20120214, end: 20120214
  15. PLAVIX [Concomitant]
     Indication: ANGINA PECTORIS
  16. LENDORMIN [Concomitant]

REACTIONS (2)
  - ANAPHYLACTIC SHOCK [None]
  - GASTRIC ULCER HAEMORRHAGE [None]
